FAERS Safety Report 4805421-0 (Version None)
Quarter: 2005Q4

REPORT INFORMATION
  Report Type: 
  Country: None (occurrence: None)
  Receive Date: 20051018
  Receipt Date: 20051007
  Transmission Date: 20060501
  Serious: Yes (Death)
  Sender: FDA-Public Use
  Company Number: T05-ESP-02772-01

PATIENT
  Age: 80 Year
  Sex: Female

DRUGS (8)
  1. MEMANTINE HCL [Suspect]
     Indication: DEMENTIA ALZHEIMER'S TYPE
  2. HYPNOTICS [Concomitant]
  3. NEUROLEPTICS [Concomitant]
  4. DONEPEZIL HCL [Concomitant]
  5. ASPIRIN [Concomitant]
  6. OMEPRAZOLE [Concomitant]
  7. CITICOLINE [Concomitant]
  8. GABAPENTIN [Concomitant]

REACTIONS (2)
  - PNEUMONIA ASPIRATION [None]
  - RESPIRATORY FAILURE [None]
